FAERS Safety Report 5591071-8 (Version None)
Quarter: 2008Q1

REPORT INFORMATION
  Report Type: 
  Country: None (occurrence: None)
  Receive Date: 20080115
  Receipt Date: 20080107
  Transmission Date: 20080703
  Serious: Yes (Hospitalization)
  Sender: FDA-Public Use
  Company Number: PHRM2008FR00469

PATIENT
  Age: 41 Year
  Sex: Female

DRUGS (4)
  1. VOLTAREN [Suspect]
     Indication: BACK PAIN
     Dosage: 1 OT, ONCE/SINGLE
     Route: 030
     Dates: start: 20070808, end: 20070808
  2. MOPRAL [Suspect]
     Indication: BACK PAIN
     Dosage: 20 MG, QD
     Route: 048
     Dates: start: 20070803
  3. KETOPROFEN [Suspect]
     Indication: BACK PAIN
     Route: 048
     Dates: start: 20070803, end: 20070808
  4. FELDENE [Suspect]
     Indication: BACK PAIN
     Route: 030
     Dates: start: 20070809, end: 20070816

REACTIONS (27)
  - ABDOMINAL PAIN UPPER [None]
  - ALANINE AMINOTRANSFERASE INCREASED [None]
  - ASPARTATE AMINOTRANSFERASE INCREASED [None]
  - BLOOD ALKALINE PHOSPHATASE INCREASED [None]
  - BLOOD AMYLASE INCREASED [None]
  - BLOOD BILIRUBIN INCREASED [None]
  - C-REACTIVE PROTEIN INCREASED [None]
  - CHEST PAIN [None]
  - COMPLEMENT FACTOR C3 INCREASED [None]
  - ELECTROCARDIOGRAM REPOLARISATION ABNORMALITY [None]
  - GAMMA-GLUTAMYLTRANSFERASE INCREASED [None]
  - HEPATIC FUNCTION ABNORMAL [None]
  - HEPATITIS CHOLESTATIC [None]
  - HEPATOMEGALY [None]
  - HYPOALBUMINAEMIA [None]
  - INFLAMMATION [None]
  - LIPASE INCREASED [None]
  - LYMPHADENOPATHY MEDIASTINAL [None]
  - NAUSEA [None]
  - PELVIC FLUID COLLECTION [None]
  - PERICARDIAL DISEASE [None]
  - PERITONEAL EFFUSION [None]
  - PLEURAL EFFUSION [None]
  - PROTHROMBIN TIME SHORTENED [None]
  - PYREXIA [None]
  - TROPONIN I [None]
  - VOMITING [None]
